FAERS Safety Report 5609136-0 (Version None)
Quarter: 2008Q1

REPORT INFORMATION
  Report Type: 
  Country: None (occurrence: None)
  Receive Date: 20080130
  Receipt Date: 20080130
  Transmission Date: 20080703
  Serious: No
  Sender: FDA-Public Use
  Company Number: None

PATIENT
  Age: 57 Year
  Sex: Male
  Weight: 81.6475 kg

DRUGS (1)
  1. OPTIRAY 350 [Suspect]
     Dosage: 100ML 2.0/SEC IV
     Route: 042

REACTIONS (2)
  - PRURITUS [None]
  - URTICARIA [None]
